FAERS Safety Report 7236151-6 (Version None)
Quarter: 2011Q1

REPORT INFORMATION
  Report Type: 
  Country: None (occurrence: None)
  Receive Date: 20110111
  Receipt Date: 20101227
  Transmission Date: 20110831
  Serious: Yes (Hospitalization)
  Sender: FDA-Public Use
  Company Number: DSA_44577_2010

PATIENT
  Age: 85 Year
  Sex: Male

DRUGS (12)
  1. FENTANYL [Suspect]
     Indication: MUSCULOSKELETAL DISORDER
     Dosage: 150 UG 1X/72 HOURS TRANSDERMAL, INTRAVENOUS DRIP, INTRAVENOUS DRIP
     Route: 062
  2. FENTANYL [Suspect]
     Indication: CHEST PAIN
     Dosage: 150 UG 1X/72 HOURS TRANSDERMAL, INTRAVENOUS DRIP, INTRAVENOUS DRIP
     Route: 062
  3. FENTANYL [Suspect]
     Indication: BACK PAIN
     Dosage: 150 UG 1X/72 HOURS TRANSDERMAL, INTRAVENOUS DRIP, INTRAVENOUS DRIP
     Route: 062
  4. GEMCITABINE [Concomitant]
  5. VINORELBINE [Concomitant]
  6. SENNA [Concomitant]
  7. FLOMAX [Concomitant]
  8. OXYCODONE HCL [Suspect]
     Indication: MUSCULOSKELETAL DISORDER
     Dosage: 15-30 MG EVERY 4 HOURS AS NEEDED
  9. HERBESSER R (NOT SPECIFIED) [Suspect]
     Indication: SUPRAVENTRICULAR TACHYCARDIA
     Dosage: 100 MG
  10. RANITIDINE [Concomitant]
  11. PREVACID [Suspect]
  12. COLACE [Concomitant]

REACTIONS (15)
  - DELIRIUM [None]
  - MIOSIS [None]
  - AGGRESSION [None]
  - DRUG INTERACTION [None]
  - DEHYDRATION [None]
  - DELUSION [None]
  - SOMNOLENCE [None]
  - PNEUMONIA [None]
  - HALLUCINATION [None]
  - TOXICITY TO VARIOUS AGENTS [None]
  - URINARY TRACT INFECTION [None]
  - DECREASED ACTIVITY [None]
  - AGITATION [None]
  - CONFUSIONAL STATE [None]
  - CLOSTRIDIUM DIFFICILE COLITIS [None]
